FAERS Safety Report 8447084 (Version 4)
Quarter: 2012Q4

REPORT INFORMATION
  Report Type: 
  Country: IR (occurrence: IR)
  Receive Date: 20120308
  Receipt Date: 20120831
  Transmission Date: 20130627
  Serious: Yes (Hospitalization)
  Sender: FDA-Public Use
  Company Number: IR-MILLENNIUM PHARMACEUTICALS, INC.-2012-01456

PATIENT

DRUGS (4)
  1. VELCADE [Suspect]
     Indication: MULTIPLE MYELOMA
     Dosage: 1.3 mg/m2, Cyclic
     Route: 042
     Dates: start: 20060116, end: 20060122
  2. DEXAMETHASONE [Suspect]
     Indication: MULTIPLE MYELOMA
     Dosage: 24 mg, Cyclic
     Route: 042
  3. MELPHALAN [Suspect]
     Indication: MULTIPLE MYELOMA
     Dosage: 5 mg, qd
     Route: 048
  4. THALIDOMIDE [Suspect]
     Indication: MULTIPLE MYELOMA
     Dosage: 100 mg, qd

REACTIONS (2)
  - Cardiac failure congestive [Unknown]
  - Chest pain [Unknown]
